FAERS Safety Report 18198979 (Version 1)
Quarter: 2020Q3

REPORT INFORMATION
  Report Type: Spontaneous
  Country: DE (occurrence: DE)
  Receive Date: 20200826
  Receipt Date: 20200826
  Transmission Date: 20201103
  Serious: Yes (Hospitalization)
  Sender: FDA-Public Use
  Company Number: DE-TEVA-2020-DE-1820151

PATIENT
  Age: 88 Year
  Sex: Male
  Weight: 75 kg

DRUGS (9)
  1. METOPROLOL. [Suspect]
     Active Substance: METOPROLOL
     Dosage: 95 MILLIGRAM DAILY;  1?0?0?0
     Route: 048
  2. RIVAROXABAN [Concomitant]
     Active Substance: RIVAROXABAN
     Dosage: 5 MILLIGRAM DAILY; 1?0?1?0
     Route: 048
  3. DIGITOXIN [Suspect]
     Active Substance: DIGITOXIN
     Dosage: 0.05 MG / DAY, MON WED FRI SUN
     Route: 048
  4. TORASEMID [Concomitant]
     Active Substance: TORSEMIDE
     Dosage: 2 DOSAGE FORMS DAILY; 10 MG, 2?0?0?0,
     Route: 048
  5. METAMIZOL [Concomitant]
     Active Substance: METAMIZOLE SODIUM
     Dosage: 500 MG / ML, 40?40?40?40, DROPS
     Route: 048
  6. PANTOPRAZOL [Concomitant]
     Active Substance: PANTOPRAZOLE SODIUM
     Dosage: 40 MILLIGRAM DAILY; 1?0?0?0
     Route: 048
  7. NATRIUMHYDROGENCARBONAT [Concomitant]
     Active Substance: SODIUM BICARBONATE
     Dosage: 2 GRAM DAILY; 1?0?1?0
     Route: 048
  8. TAMSULOSIN [Concomitant]
     Active Substance: TAMSULOSIN
     Dosage: .4 MILLIGRAM DAILY; 0?0?1?0
     Route: 048
  9. URSODEOXYCHOLSAURE [Concomitant]
     Dosage: 500 MILLIGRAM DAILY; 1?0?1?0
     Route: 048

REACTIONS (6)
  - Bradycardia [Recovering/Resolving]
  - Hypotension [Recovering/Resolving]
  - Asthenia [Recovering/Resolving]
  - Renal impairment [Recovering/Resolving]
  - Dizziness [Recovering/Resolving]
  - Infection [Recovering/Resolving]
